FAERS Safety Report 9659914 (Version 1)
Quarter: 2013Q4

REPORT INFORMATION
  Report Type: Spontaneous
  Country: IT (occurrence: FR)
  Receive Date: 20131031
  Receipt Date: 20131031
  Transmission Date: 20140711
  Serious: Yes (Hospitalization)
  Sender: FDA-Public Use
  Company Number: FR-FRI-1000050581

PATIENT
  Age: 25 Year
  Sex: Female

DRUGS (1)
  1. FOSFOMYCIN [Suspect]
     Indication: URINARY TRACT DISORDER
     Dosage: 1 DF
     Route: 048
     Dates: start: 20130905, end: 20130905

REACTIONS (1)
  - Pancreatitis acute [Recovered/Resolved]
